FAERS Safety Report 16237096 (Version 1)
Quarter: 2019Q2

REPORT INFORMATION
  Report Type: Spontaneous
  Country: IL (occurrence: IL)
  Receive Date: 20190425
  Receipt Date: 20190425
  Transmission Date: 20190711
  Serious: Yes (Other)
  Sender: FDA-Public Use
  Company Number: IL-TEVA-2019-IL-1040499

PATIENT
  Age: 45 Year
  Sex: Female

DRUGS (2)
  1. TAMOXIFEN [Suspect]
     Active Substance: TAMOXIFEN
     Indication: BREAST CANCER
     Dosage: 1 DOSAGE FORMS DAILY; STOPPED FOR 2 MONTHS AND RESUMED TAKING 10 DAYS AGO.
     Route: 065
  2. MAGNESIUM [Concomitant]
     Active Substance: MAGNESIUM
     Dosage: AT NIGHT
     Route: 065

REACTIONS (7)
  - Liver injury [Recovered/Resolved]
  - Ovarian cyst [Recovered/Resolved]
  - Screaming [Not Recovered/Not Resolved]
  - Alopecia [Unknown]
  - Loss of personal independence in daily activities [Not Recovered/Not Resolved]
  - Pain [Not Recovered/Not Resolved]
  - Muscle spasms [Not Recovered/Not Resolved]
